FAERS Safety Report 19072730 (Version 3)
Quarter: 2021Q3

REPORT INFORMATION
  Report Type: Report from Study
  Country: US (occurrence: US)
  Receive Date: 20210330
  Receipt Date: 20210928
  Transmission Date: 20211014
  Serious: No
  Sender: FDA-Public Use
  Company Number: NVSC2021US066833

PATIENT

DRUGS (1)
  1. ENTRESTO [Suspect]
     Active Substance: SACUBITRIL\VALSARTAN
     Indication: PRODUCT USED FOR UNKNOWN INDICATION
     Dosage: UNK UNK, BID
     Route: 048
     Dates: start: 202011

REACTIONS (13)
  - Emotional disorder [Unknown]
  - Stress [Unknown]
  - Limb discomfort [Unknown]
  - Arthropathy [Unknown]
  - Fatigue [Unknown]
  - Internal injury [Unknown]
  - Muscle disorder [Unknown]
  - Weight increased [Unknown]
  - Pain in extremity [Recovering/Resolving]
  - Infection [Unknown]
  - Fall [Unknown]
  - Skin discolouration [Unknown]
  - Weight decreased [Unknown]
